FAERS Safety Report 9235703 (Version 2)
Quarter: 2013Q2

REPORT INFORMATION
  Report Type: Spontaneous
  Country: US (occurrence: None)
  Receive Date: 20121031
  Receipt Date: 20130107
  Transmission Date: 20140414
  Serious: No
  Sender: FDA-Public Use
  Company Number: PHEH2012US017085

PATIENT
  Age: 37 Year
  Sex: Male
  Weight: 96.1 kg

DRUGS (1)
  1. GILENYA [Suspect]
     Indication: MULTIPLE SCLEROSIS
     Route: 048
     Dates: start: 20120829

REACTIONS (4)
  - Palpitations [None]
  - Heart rate irregular [None]
  - Headache [None]
  - Dizziness [None]
